FAERS Safety Report 12599380 (Version 1)
Quarter: 2016Q3

REPORT INFORMATION
  Report Type: Spontaneous
  Country: US (occurrence: US)
  Receive Date: 20160727
  Receipt Date: 20160727
  Transmission Date: 20161109
  Serious: Yes (Hospitalization)
  Sender: FDA-Public Use
  Company Number: US-PFIZER INC-2016358899

PATIENT
  Age: 61 Year
  Sex: Male
  Weight: 65.77 kg

DRUGS (1)
  1. REVATIO [Suspect]
     Active Substance: SILDENAFIL CITRATE
     Indication: PULMONARY HYPERTENSION
     Dosage: 20 MG, 3X/DAY (20 MG TABLET THREE TIMES A DAY)
     Route: 048

REACTIONS (1)
  - Lung disorder [Recovering/Resolving]
